FAERS Safety Report 10339561 (Version 3)
Quarter: 2023Q1

REPORT INFORMATION
  Report Type: Spontaneous
  Country: FR (occurrence: FR)
  Receive Date: 20140724
  Receipt Date: 20230314
  Transmission Date: 20230418
  Serious: Yes (Other)
  Sender: FDA-Public Use
  Company Number: PHHY2014FR086546

PATIENT
  Age: 68 Year
  Sex: Male
  Weight: 72 kg

DRUGS (1)
  1. ITRACONAZOLE [Suspect]
     Active Substance: ITRACONAZOLE
     Indication: Bronchopulmonary aspergillosis
     Dosage: 200 MG, PER DAY
     Route: 065
     Dates: start: 201107

REACTIONS (3)
  - Hypokalaemia [Unknown]
  - Hypertension [Unknown]
  - Oedema peripheral [Unknown]
